FAERS Safety Report 17751404 (Version 6)
Quarter: 2024Q1

REPORT INFORMATION
  Report Type: Spontaneous
  Country: US (occurrence: US)
  Receive Date: 20200506
  Receipt Date: 20240312
  Transmission Date: 20240409
  Serious: No
  Sender: FDA-Public Use
  Company Number: US-SA-2019SA123618

PATIENT
  Age: 27 Year
  Sex: Male
  Weight: 68.03 kg

DRUGS (3)
  1. CEREZYME [Suspect]
     Active Substance: IMIGLUCERASE
     Indication: Gaucher^s disease
     Dosage: 2400 UNITS, QOW
     Route: 042
     Dates: start: 20110923
  2. CEREZYME [Suspect]
     Active Substance: IMIGLUCERASE
     Dosage: 2400 UNITS, QOW
     Route: 042
     Dates: start: 20160302
  3. CEREZYME [Suspect]
     Active Substance: IMIGLUCERASE
     Dosage: 2400 UNITS, QOW
     Route: 042
     Dates: start: 201803

REACTIONS (3)
  - Weight decreased [Unknown]
  - Ill-defined disorder [Unknown]
  - Inappropriate schedule of product administration [Unknown]
